FAERS Safety Report 8924550 (Version 1)
Quarter: 2012Q4

REPORT INFORMATION
  Report Type: 
  Country: FR (occurrence: FR)
  Receive Date: 20121126
  Receipt Date: 20121126
  Transmission Date: 20130627
  Serious: Yes (Hospitalization, Other)
  Sender: FDA-Public Use
  Company Number: FR-ASTRAZENECA-2012SE87131

PATIENT
  Age: 20454 Day
  Sex: Female

DRUGS (4)
  1. XEROQUEL [Suspect]
     Indication: BIPOLAR DISORDER
     Route: 048
  2. XEROQUEL [Suspect]
     Indication: BIPOLAR DISORDER
     Route: 048
  3. NORSET [Suspect]
     Route: 048
  4. UNSPECIFIED ANXIOLYTIC MEDICATION [Concomitant]
     Route: 048

REACTIONS (2)
  - Bipolar disorder [Unknown]
  - Diabetes mellitus [Recovering/Resolving]
